FAERS Safety Report 18908608 (Version 1)
Quarter: 2021Q1

REPORT INFORMATION
  Report Type: Spontaneous
  Country: US (occurrence: US)
  Receive Date: 20210217
  Receipt Date: 20210217
  Transmission Date: 20210420
  Serious: No
  Sender: FDA-Public Use
  Company Number: None

PATIENT
  Age: 39 Year
  Sex: Female

DRUGS (1)
  1. ADAKVEO [Suspect]
     Active Substance: CRIZANLIZUMAB-TMCA
     Indication: SICKLE CELL DISEASE
     Dosage: ?          OTHER STRENGTH:100MG/10ML ;?
     Route: 042

REACTIONS (2)
  - Sickle cell anaemia with crisis [None]
  - Hospitalisation [None]

NARRATIVE: CASE EVENT DATE: 20210205
